FAERS Safety Report 16827644 (Version 1)
Quarter: 2019Q3

REPORT INFORMATION
  Report Type: Spontaneous
  Country: US (occurrence: US)
  Receive Date: 20190919
  Receipt Date: 20190919
  Transmission Date: 20191005
  Serious: No
  Sender: FDA-Public Use
  Company Number: US-PFIZER INC-2019400750

PATIENT
  Age: 47 Year

DRUGS (1)
  1. CLINDAMYCIN. [Suspect]
     Active Substance: CLINDAMYCIN
     Dosage: UNK

REACTIONS (5)
  - Nausea [Unknown]
  - Drug hypersensitivity [Unknown]
  - Dizziness [Unknown]
  - Vomiting [Unknown]
  - Asthenia [Unknown]
